FAERS Safety Report 10381937 (Version 1)
Quarter: 2014Q1

REPORT INFORMATION
  Report Type: Spontaneous
  Country: US (occurrence: None)
  Receive Date: 20140306
  Receipt Date: 20140306
  Transmission Date: 20141002
  Serious: Yes (Other)
  Sender: FDA-Public Use
  Company Number: 163-21880-13103743

PATIENT
  Age: 64 Year
  Sex: Male
  Weight: 72.58 kg

DRUGS (9)
  1. REVLIMID [Suspect]
     Indication: PLASMA CELL MYELOMA
     Dosage: 14 IN 21D
     Route: 048
     Dates: start: 20120703
  2. DEXAMETHASONE (DEXAMETHASONE) [Concomitant]
  3. ZOMETA (ZOLEDRONIC ACID) [Concomitant]
  4. GABAPENTIN (GABAPENTIN) [Concomitant]
  5. QUINAPRIL (QUINAPRIL) [Concomitant]
  6. ATORVASTATIN CALCIUM (ATORVASTATIN CALCIUM) [Concomitant]
  7. ALFUZOSIN HCL (ALFUZOSIN HYDROCHLORIDE) [Concomitant]
  8. FERROUS SULFATE (FERROUS SULFATE) [Concomitant]
  9. OSCAL/VITAMIN D-3 (CALCIUM D3 *STADA* [Concomitant]

REACTIONS (1)
  - Dental care [None]
